FAERS Safety Report 22906194 (Version 3)
Quarter: 2023Q4

REPORT INFORMATION
  Report Type: Report from Study
  Country: US (occurrence: US)
  Receive Date: 20230905
  Receipt Date: 20231019
  Transmission Date: 20240110
  Serious: Yes (Hospitalization)
  Sender: FDA-Public Use
  Company Number: US-PFIZER INC-PV202300031283

PATIENT
  Age: 47 Year
  Sex: Male
  Weight: 107.5 kg

DRUGS (11)
  1. DOXORUBICIN HYDROCHLORIDE [Suspect]
     Active Substance: DOXORUBICIN HYDROCHLORIDE
     Indication: Leiomyosarcoma
     Dosage: 75 MG/M2, DAY 1 OF EACH 21 DAYS CYCLE FOR A MAXIMUM OF 6 CYCLES
     Route: 042
     Dates: start: 20230117, end: 20230207
  2. DOXORUBICIN HYDROCHLORIDE [Suspect]
     Active Substance: DOXORUBICIN HYDROCHLORIDE
     Dosage: 60 MG/M2, DAY 1 OF EACH 21 DAYS CYCLE FOR A MAXIMUM OF 6 CYCLES
     Route: 042
     Dates: start: 20230207, end: 20230228
  3. INVESTIGATIONAL PRODUCT [Suspect]
     Active Substance: INVESTIGATIONAL PRODUCT
     Indication: Leiomyosarcoma
     Dosage: 2 MG/KG (TOTAL DOSE 216 MG)
     Route: 042
     Dates: start: 20230117, end: 20230124
  4. INVESTIGATIONAL PRODUCT [Suspect]
     Active Substance: INVESTIGATIONAL PRODUCT
     Dosage: REDUCED DOSE OF 1.4 MG/KG (TOTAL DOSE 150.5MG)
     Route: 042
     Dates: start: 20230207, end: 20230228
  5. TADALAFIL [Concomitant]
     Active Substance: TADALAFIL
     Indication: Erectile dysfunction
     Dosage: 20 MG, AS NEEDED
     Route: 048
     Dates: start: 20221221
  6. METFORMIN HYDROCHLORIDE [Concomitant]
     Active Substance: METFORMIN HYDROCHLORIDE
     Indication: Hyperglycaemia
     Dosage: 500 MG, DAILY
     Route: 048
     Dates: start: 20220316
  7. ATORVASTATIN [Concomitant]
     Active Substance: ATORVASTATIN
     Indication: Hyperlipidaemia
     Dosage: 40 MG, DAILY
     Route: 048
     Dates: start: 20221101
  8. LOSARTAN [Concomitant]
     Active Substance: LOSARTAN
     Indication: Hypertension
     Dosage: 25 MG, DAILY
     Route: 048
     Dates: start: 20210101
  9. LOVENOX [Concomitant]
     Active Substance: ENOXAPARIN SODIUM
     Indication: Deep vein thrombosis
     Dosage: 150 MG, DAILY
     Route: 058
     Dates: start: 20221230
  10. ACETAMINOPHEN [Concomitant]
     Active Substance: ACETAMINOPHEN
     Indication: Pain
     Dosage: 1000 MG, AS NEEDED
     Route: 048
     Dates: start: 20230117
  11. PANTOPRAZOLE [Concomitant]
     Active Substance: PANTOPRAZOLE
     Indication: Chest discomfort
     Dosage: 40 MG, DAILY
     Route: 048
     Dates: start: 20230118

REACTIONS (3)
  - Cardiac hypertrophy [Recovered/Resolved]
  - Myocardial fibrosis [Recovered/Resolved]
  - Cardiotoxicity [Recovered/Resolved]

NARRATIVE: CASE EVENT DATE: 20230214
